FAERS Safety Report 7020377-0 (Version None)
Quarter: 2010Q3

REPORT INFORMATION
  Report Type: 
  Country: None (occurrence: None)
  Receive Date: 20100929
  Receipt Date: 20100921
  Transmission Date: 20110219
  Serious: Yes (Other)
  Sender: FDA-Public Use
  Company Number: AU-WYE-G06695610

PATIENT
  Sex: Female

DRUGS (2)
  1. PRISTIQ [Suspect]
     Dosage: 50MG DAILY THEN 100MG DAILY
     Dates: start: 20100101
  2. SEROQUEL [Concomitant]

REACTIONS (1)
  - GAIT DISTURBANCE [None]
